FAERS Safety Report 7511236-5 (Version None)
Quarter: 2011Q2

REPORT INFORMATION
  Report Type: 
  Country: None (occurrence: None)
  Receive Date: 20110531
  Receipt Date: 20110524
  Transmission Date: 20111010
  Serious: Yes (Death)
  Sender: FDA-Public Use
  Company Number: PHHY2011US44716

PATIENT
  Sex: Female
  Weight: 63.039 kg

DRUGS (1)
  1. EXJADE [Suspect]
     Indication: IRON METABOLISM DISORDER
     Dosage: 250 MG, QD
     Route: 048
     Dates: start: 20090427

REACTIONS (1)
  - CEREBROVASCULAR ACCIDENT [None]
